FAERS Safety Report 12660531 (Version 1)
Quarter: 2016Q3

REPORT INFORMATION
  Report Type: Spontaneous
  Country: GB (occurrence: GB)
  Receive Date: 20160817
  Receipt Date: 20160817
  Transmission Date: 20161109
  Serious: Yes (Other)
  Sender: FDA-Public Use
  Company Number: ALCN2016GB005533

PATIENT
  Age: 44 Year
  Sex: Female

DRUGS (3)
  1. NEVANAC [Suspect]
     Active Substance: NEPAFENAC
     Indication: DIABETES PROPHYLAXIS
     Dosage: 1 DF, TID
     Route: 061
  2. DOXYCYCLINE. [Concomitant]
     Active Substance: DOXYCYCLINE
     Indication: POSTOPERATIVE CARE
     Dosage: UNK
     Route: 065
  3. MAXITROL [Concomitant]
     Active Substance: DEXAMETHASONE\NEOMYCIN SULFATE\POLYMYXIN B SULFATE
     Indication: POSTOPERATIVE CARE
     Dosage: UNK
     Route: 065

REACTIONS (3)
  - Keratitis [Not Recovered/Not Resolved]
  - Ulcerative keratitis [Recovering/Resolving]
  - Punctate keratitis [Unknown]
